FAERS Safety Report 12831325 (Version 1)
Quarter: 2016Q4

REPORT INFORMATION
  Report Type: Report from Study
  Country: None (occurrence: BR)
  Receive Date: 20161008
  Receipt Date: 20161008
  Transmission Date: 20170207
  Serious: Yes (Hospitalization, Disabling)
  Sender: FDA-Public Use
  Company Number: BR-ABBVIE-16K-020-1696699-00

PATIENT
  Age: 52 Year
  Sex: Female

DRUGS (8)
  1. HUMIRA [Suspect]
     Active Substance: ADALIMUMAB
     Indication: RHEUMATOID ARTHRITIS
     Route: 058
     Dates: start: 20131211
  2. PREDNISONE. [Concomitant]
     Active Substance: PREDNISONE
     Indication: ARTHRITIS
     Route: 048
     Dates: start: 2013
  3. ORLISTAT [Concomitant]
     Active Substance: ORLISTAT
     Indication: WEIGHT CONTROL
     Route: 048
     Dates: start: 2016
  4. LOSARTAN. [Concomitant]
     Active Substance: LOSARTAN
     Indication: HYPERTENSION
     Route: 048
  5. HUMECTOL [Concomitant]
     Indication: CONSTIPATION
     Route: 048
  6. CALCIUM BICARBONATE [Concomitant]
     Active Substance: CALCIUM BICARBONATE
     Indication: BONE DISORDER
     Route: 048
  7. ROXFLAN [Concomitant]
     Active Substance: AMLODIPINE BESYLATE
     Indication: HEADACHE
     Route: 048
     Dates: start: 2014
  8. BUPROPIONE [Concomitant]
     Active Substance: BUPROPION HYDROCHLORIDE
     Indication: DEPRESSION
     Route: 048

REACTIONS (11)
  - Tremor [Unknown]
  - Mobility decreased [Unknown]
  - Nervousness [Unknown]
  - Dysstasia [Unknown]
  - Back pain [Unknown]
  - Spinal disorder [Unknown]
  - Arthralgia [Unknown]
  - Intervertebral disc protrusion [Not Recovered/Not Resolved]
  - Dyspnoea [Unknown]
  - Pain in extremity [Unknown]
  - Pain [Unknown]

NARRATIVE: CASE EVENT DATE: 201509
